FAERS Safety Report 13160318 (Version 5)
Quarter: 2018Q3

REPORT INFORMATION
  Report Type: Report from Study
  Country: US (occurrence: US)
  Receive Date: 20170127
  Receipt Date: 20180720
  Transmission Date: 20181010
  Serious: Yes (Hospitalization)
  Sender: FDA-Public Use
  Company Number: US-GILEAD-2017-0253260

PATIENT
  Age: 66 Year
  Sex: Female
  Weight: 68.1 kg

DRUGS (28)
  1. TIRABRUTINIB [Suspect]
     Active Substance: TIRABRUTINIB
     Indication: B-CELL LYMPHOMA
     Dosage: 80 MG, QD
     Route: 048
     Dates: start: 20160728, end: 20161208
  2. TIRABRUTINIB [Suspect]
     Active Substance: TIRABRUTINIB
     Dosage: 40 MG, QD
     Route: 048
     Dates: start: 20170126, end: 20170619
  3. TIRABRUTINIB [Suspect]
     Active Substance: TIRABRUTINIB
     Dosage: 20 MG, QD
     Route: 048
     Dates: start: 20170706, end: 20170821
  4. ACYCLOVIR                          /00587301/ [Concomitant]
     Active Substance: ACYCLOVIR
     Indication: PROPHYLAXIS
     Route: 048
     Dates: start: 20160510
  5. PROCHLORPERAZINE. [Concomitant]
     Active Substance: PROCHLORPERAZINE
     Indication: VOMITING
     Route: 048
     Dates: start: 20170109
  6. TIRABRUTINIB [Suspect]
     Active Substance: TIRABRUTINIB
     Dosage: UNK
     Route: 048
     Dates: start: 20170620, end: 20170705
  7. TIRABRUTINIB [Suspect]
     Active Substance: TIRABRUTINIB
     Dosage: 40 MG, QD
     Route: 048
     Dates: start: 20170926
  8. IDELALISIB [Suspect]
     Active Substance: IDELALISIB
     Dosage: 50 MG, QD
     Route: 048
     Dates: start: 20170126, end: 20170227
  9. VICKS DAYQUIL [Concomitant]
     Active Substance: DEXTROMETHORPHAN HYDROBROMIDE\GUAIFENESIN
     Indication: UPPER RESPIRATORY TRACT INFECTION
     Route: 048
     Dates: start: 20160923
  10. OFLOXACIN. [Concomitant]
     Active Substance: OFLOXACIN
     Indication: EAR PAIN
     Route: 001
     Dates: start: 20170106, end: 20170108
  11. POTASSIUM CHLORIDE. [Concomitant]
     Active Substance: POTASSIUM CHLORIDE
     Indication: HYPOKALAEMIA
     Dosage: UNK
     Route: 048
     Dates: start: 20170109
  12. DAPSONE. [Concomitant]
     Active Substance: DAPSONE
     Dosage: UNK
     Route: 048
     Dates: start: 20161006, end: 20170628
  13. CALCIUM CARBONATE. [Concomitant]
     Active Substance: CALCIUM CARBONATE
     Indication: DYSPEPSIA
  14. IDELALISIB [Suspect]
     Active Substance: IDELALISIB
     Dosage: 100 MG, QD
     Route: 048
     Dates: start: 20170228
  15. SODIUM PHOSPHATE [Concomitant]
     Active Substance: SODIUM PHOSPHATE
     Indication: HYPOPHOSPHATAEMIA
     Route: 042
     Dates: start: 20170109
  16. OFLOXACIN. [Concomitant]
     Active Substance: OFLOXACIN
     Dosage: UNK
     Route: 001
     Dates: start: 20170106, end: 20170113
  17. SALIVA SUBSTITUTE [Concomitant]
     Active Substance: CARBOXYMETHYLCELLULOSE SODIUM\DEVICE\SORBINICATE
     Indication: DRY MOUTH
     Route: 050
     Dates: start: 20170109
  18. POTASSIUM PHOSPHATE                /00493501/ [Concomitant]
     Active Substance: POTASSIUM PHOSPHATE, DIBASIC
     Indication: HYPOKALAEMIA
     Route: 042
     Dates: start: 20170109
  19. VICKS NYQUIL [Concomitant]
     Active Substance: ACETAMINOPHEN\DEXTROMETHORPHAN HYDROBROMIDE\DOXYLAMINE SUCCINATE
     Indication: UPPER RESPIRATORY TRACT INFECTION
     Route: 048
     Dates: start: 20160923
  20. CALCIUM CARBONATE. [Concomitant]
     Active Substance: CALCIUM CARBONATE
     Indication: ABDOMINAL DISCOMFORT
     Route: 048
     Dates: start: 20170113, end: 20170118
  21. TIRABRUTINIB [Suspect]
     Active Substance: TIRABRUTINIB
     Dosage: UNK, QD
     Route: 048
     Dates: start: 20161209, end: 20170125
  22. LEVOTHYROXINE. [Concomitant]
     Active Substance: LEVOTHYROXINE
     Indication: HYPOTHYROIDISM
     Route: 048
     Dates: start: 20131001
  23. RAMELTEON [Concomitant]
     Active Substance: RAMELTEON
     Indication: INSOMNIA
     Route: 048
     Dates: start: 20170109
  24. POTASSIUM CHLORIDE. [Concomitant]
     Active Substance: POTASSIUM CHLORIDE
     Dosage: UNK
     Route: 042
     Dates: start: 20170109
  25. CODEINE PHOSPHATE W/GUAIFENESIN [Concomitant]
     Active Substance: CODEINE PHOSPHATE\GUAIFENESIN
     Indication: COUGH
     Route: 048
     Dates: start: 20170113, end: 20170206
  26. IDELALISIB [Suspect]
     Active Substance: IDELALISIB
     Indication: B-CELL LYMPHOMA
     Dosage: 100 MG, QD
     Route: 048
     Dates: start: 20160729, end: 20170107
  27. IDELALISIB [Suspect]
     Active Substance: IDELALISIB
     Dosage: UNK, QD
     Route: 048
     Dates: start: 20170108, end: 20170125
  28. DAPSONE. [Concomitant]
     Active Substance: DAPSONE
     Indication: ANTIFUNGAL PROPHYLAXIS
     Route: 048
     Dates: start: 20161006

REACTIONS (2)
  - Hypervolaemia [Recovered/Resolved]
  - Pneumonia [Recovered/Resolved]

NARRATIVE: CASE EVENT DATE: 20170108
